FAERS Safety Report 7081028-2 (Version None)
Quarter: 2010Q4

REPORT INFORMATION
  Report Type: 
  Country: None (occurrence: None)
  Receive Date: 20101103
  Receipt Date: 20101021
  Transmission Date: 20110411
  Serious: Yes (Other)
  Sender: FDA-Public Use
  Company Number: US-ROCHE-694393

PATIENT
  Sex: Female
  Weight: 56.7 kg

DRUGS (6)
  1. ACCUTANE [Suspect]
     Indication: ACNE
     Dosage: STRENGTH: 20 MG AND 40 MG
     Route: 048
     Dates: start: 20000310, end: 20000401
  2. ACCUTANE [Suspect]
     Route: 048
     Dates: start: 20000415
  3. ACCUTANE [Suspect]
     Route: 048
  4. ACCUTANE [Suspect]
     Route: 048
     Dates: end: 20000801
  5. DIAZEPAM [Concomitant]
  6. CYCLOBENZAPRINE [Concomitant]

REACTIONS (11)
  - ACUTE PSYCHOSIS [None]
  - ALOPECIA [None]
  - ANGER [None]
  - ARTHRALGIA [None]
  - CHAPPED LIPS [None]
  - DEPRESSION [None]
  - EPISTAXIS [None]
  - INFLAMMATORY BOWEL DISEASE [None]
  - INTESTINAL MALROTATION [None]
  - MUSCLE SPASMS [None]
  - SUICIDAL IDEATION [None]
